FAERS Safety Report 13144062 (Version 5)
Quarter: 2017Q1

REPORT INFORMATION
  Report Type: Spontaneous
  Country: US (occurrence: US)
  Receive Date: 20170124
  Receipt Date: 20170309
  Transmission Date: 20170428
  Serious: No
  Sender: FDA-Public Use
  Company Number: US-ASTRAZENECA-2017SE06147

PATIENT
  Age: 50 Year
  Sex: Female

DRUGS (6)
  1. SYMBICORT [Suspect]
     Active Substance: BUDESONIDE\FORMOTEROL FUMARATE DIHYDRATE
     Indication: OBSTRUCTIVE AIRWAYS DISORDER
     Dosage: 80/4.5 MICROGRAMS, 2 PUFFS TWICE A DAY
     Route: 055
     Dates: start: 20161223
  2. SYMBICORT [Suspect]
     Active Substance: BUDESONIDE\FORMOTEROL FUMARATE DIHYDRATE
     Indication: DYSPNOEA
     Dosage: 80/4.5 MICROGRAMS, 2 PUFFS TWICE A DAY
     Route: 055
     Dates: start: 20161223
  3. SYMBICORT [Suspect]
     Active Substance: BUDESONIDE\FORMOTEROL FUMARATE DIHYDRATE
     Indication: OBSTRUCTIVE AIRWAYS DISORDER
     Dosage: 80/4.5 MICROGRAMS, 1 PUFFS TWICE A DAY
     Route: 055
     Dates: start: 20170130
  4. SYMBICORT [Suspect]
     Active Substance: BUDESONIDE\FORMOTEROL FUMARATE DIHYDRATE
     Indication: DYSPNOEA
     Dosage: 80/4.5 MICROGRAMS, 2 PUFFS TWICE A DAY
     Route: 055
     Dates: start: 20161223
  5. SYMBICORT [Suspect]
     Active Substance: BUDESONIDE\FORMOTEROL FUMARATE DIHYDRATE
     Indication: DYSPNOEA
     Dosage: 80/4.5 MICROGRAMS, 1 PUFFS TWICE A DAY
     Route: 055
     Dates: start: 20170130
  6. SYMBICORT [Suspect]
     Active Substance: BUDESONIDE\FORMOTEROL FUMARATE DIHYDRATE
     Indication: DYSPNOEA
     Dosage: 80/4.5 MICROGRAMS, 1 PUFFS TWICE A DAY
     Route: 055
     Dates: start: 20170130

REACTIONS (7)
  - Intentional product misuse [Unknown]
  - Dysgeusia [Unknown]
  - Drug effect delayed [Unknown]
  - Off label use [Unknown]
  - Hyperventilation [Unknown]
  - Product use issue [Unknown]
  - Dyspnoea [Unknown]
